FAERS Safety Report 4713650-X (Version None)
Quarter: 2005Q3

REPORT INFORMATION
  Report Type: 
  Country: None (occurrence: None)
  Receive Date: 20050712
  Receipt Date: 20050624
  Transmission Date: 20060218
  Serious: Yes (Hospitalization)
  Sender: FDA-Public Use
  Company Number: T04-NLD-07228-01

PATIENT
  Age: 77 Year
  Sex: Female
  Weight: 67 kg

DRUGS (8)
  1. ESCITALOPRAM OXALATE [Suspect]
     Indication: MAJOR DEPRESSION
     Dosage: 10 MG QD PO
     Route: 048
     Dates: start: 20040611, end: 20040903
  2. AMARYL [Concomitant]
  3. METFORMIN [Concomitant]
  4. ASCAL(ACETYLSALICYLATE CALCIUM) [Concomitant]
  5. LEGENDAL (LACTULOSE) [Concomitant]
  6. DURATEARS [Concomitant]
  7. NORTRILEN FILMTABLETTEN [Concomitant]
  8. TRANXENE [Concomitant]

REACTIONS (2)
  - HEPATIC CIRRHOSIS [None]
  - SERUM FERRITIN INCREASED [None]
